FAERS Safety Report 21135284 (Version 2)
Quarter: 2022Q3

REPORT INFORMATION
  Report Type: Spontaneous
  Country: EG (occurrence: EG)
  Receive Date: 20220727
  Receipt Date: 20220809
  Transmission Date: 20221027
  Serious: Yes (Life-Threatening, Hospitalization, Disabling)
  Sender: FDA-Public Use
  Company Number: EG-NOVOPROD-940189

PATIENT
  Age: 58 Year
  Sex: Female

DRUGS (7)
  1. NOVORAPID [Suspect]
     Active Substance: INSULIN ASPART
     Indication: Diabetes mellitus
     Dosage: 6 IU, QD
     Route: 058
  2. INSULIN HUMAN [Suspect]
     Active Substance: INSULIN HUMAN
     Indication: Diabetes mellitus
     Dosage: 55 IU, QD (35U AT MORNING AND 20U AT NIGHT)
     Route: 058
  3. CRESTOR [Concomitant]
     Active Substance: ROSUVASTATIN CALCIUM
     Indication: Dyslipidaemia
     Dosage: 10 MG
  4. PLAVIX [Concomitant]
     Active Substance: CLOPIDOGREL BISULFATE
     Indication: Anticoagulant therapy
     Dosage: 75 MG(1 TAB/DAY)
  5. ERASTAPEX TRIO [Concomitant]
     Indication: Hypertension
     Dosage: 20MG/5MG/12.5MG
  6. CIDOPHAGE [Concomitant]
     Indication: Diabetes mellitus
     Dosage: 2 TAB/DAY (MORNING AND NIGHT)
  7. CHOLESTROL [Concomitant]
     Indication: Dyslipidaemia
     Dosage: 1 TABLET AT NIGHT ( STARTED FROM MANY YEARS)
     Route: 048

REACTIONS (1)
  - Cerebrovascular accident [Not Recovered/Not Resolved]
